FAERS Safety Report 9445242 (Version 2)
Quarter: 2013Q3

REPORT INFORMATION
  Report Type: Report from Study
  Country: JP (occurrence: JP)
  Receive Date: 20130807
  Receipt Date: 20130815
  Transmission Date: 20140515
  Serious: Yes (Other)
  Sender: FDA-Public Use
  Company Number: JP-GLAXOSMITHKLINE-B0912880A

PATIENT
  Age: 50 Year
  Sex: Female
  Weight: 85 kg

DRUGS (27)
  1. LAMICTAL [Suspect]
     Indication: BIPOLAR I DISORDER
     Dosage: 25MG PER DAY
     Route: 048
     Dates: start: 20120427, end: 20120511
  2. LAMICTAL [Suspect]
     Indication: BIPOLAR I DISORDER
     Dosage: 5MG TWICE PER DAY
     Route: 048
     Dates: start: 20120511, end: 20120525
  3. LAMICTAL [Suspect]
     Indication: BIPOLAR I DISORDER
     Dosage: 10MG TWICE PER DAY
     Route: 048
     Dates: start: 20120525, end: 20120611
  4. LAMICTAL [Suspect]
     Indication: BIPOLAR I DISORDER
     Dosage: 15MG TWICE PER DAY
     Route: 048
     Dates: start: 20120611, end: 20120629
  5. LAMICTAL [Suspect]
     Indication: BIPOLAR I DISORDER
     Dosage: 25MG TWICE PER DAY
     Route: 048
     Dates: start: 20120629, end: 20120713
  6. LAMICTAL [Suspect]
     Indication: BIPOLAR I DISORDER
     Dosage: 37.5MG TWICE PER DAY
     Route: 048
     Dates: start: 20120713, end: 20120803
  7. LAMICTAL [Suspect]
     Indication: BIPOLAR I DISORDER
     Dosage: 50MG TWICE PER DAY
     Route: 048
     Dates: start: 20120803, end: 20120824
  8. LAMICTAL [Suspect]
     Indication: BIPOLAR I DISORDER
     Dosage: 75MG TWICE PER DAY
     Route: 048
     Dates: start: 20120824, end: 20120921
  9. LAMICTAL [Suspect]
     Indication: BIPOLAR I DISORDER
     Dosage: 100MG TWICE PER DAY
     Route: 048
     Dates: start: 20120921, end: 20121019
  10. LAMICTAL [Suspect]
     Indication: BIPOLAR I DISORDER
     Dosage: 125MG TWICE PER DAY
     Route: 048
     Dates: start: 20121019, end: 20121109
  11. LAMICTAL [Suspect]
     Indication: BIPOLAR I DISORDER
     Dosage: 150MG TWICE PER DAY
     Route: 048
     Dates: start: 20121109
  12. SEROQUEL [Suspect]
     Indication: DEPRESSION
     Route: 048
  13. SEROQUEL [Suspect]
     Indication: DEPRESSION
     Route: 048
     Dates: start: 20120525, end: 20121019
  14. SEROQUEL [Suspect]
     Indication: DEPRESSION
     Route: 048
     Dates: start: 20121019, end: 20121109
  15. SEROQUEL [Suspect]
     Indication: DEPRESSION
     Route: 048
     Dates: start: 20121109, end: 20121130
  16. LULLAN [Concomitant]
     Indication: DEPRESSION
     Route: 048
     Dates: start: 20121109
  17. LULLAN [Concomitant]
     Indication: DEPRESSION
     Route: 048
     Dates: start: 20121130
  18. LULLAN [Concomitant]
     Indication: DEPRESSION
     Route: 048
     Dates: start: 20121221
  19. LULLAN [Concomitant]
     Indication: DEPRESSION
     Route: 048
     Dates: start: 20130315, end: 20130412
  20. TEGRETOL [Concomitant]
     Indication: DEPRESSION
     Route: 048
     Dates: end: 20120525
  21. TEGRETOL [Concomitant]
     Indication: DEPRESSION
     Route: 048
     Dates: start: 20120525, end: 20120611
  22. TEGRETOL [Concomitant]
     Indication: DEPRESSION
     Route: 048
     Dates: start: 20120611, end: 20120629
  23. ROZEREM [Concomitant]
     Dosage: 8MG PER DAY
     Route: 048
  24. DORAL [Concomitant]
     Dosage: 15MG PER DAY
     Route: 048
  25. LENDORMIN [Concomitant]
     Dosage: .25MG PER DAY
     Route: 048
  26. THYRADIN S [Concomitant]
     Dosage: 100MCG PER DAY
     Route: 048
  27. BEZATOL SR [Concomitant]
     Dosage: 200MG TWICE PER DAY
     Route: 048

REACTIONS (2)
  - Diabetes mellitus [Recovered/Resolved]
  - Tinea cruris [Recovering/Resolving]
